FAERS Safety Report 20169535 (Version 4)
Quarter: 2022Q1

REPORT INFORMATION
  Report Type: Spontaneous
  Country: JP (occurrence: JP)
  Receive Date: 20211210
  Receipt Date: 20220304
  Transmission Date: 20220423
  Serious: Yes (Death, Hospitalization, Other)
  Sender: FDA-Public Use
  Company Number: JP-GSKNCCC-Case-01370857_AE-52645

PATIENT
  Sex: Female

DRUGS (10)
  1. LAMICTAL [Suspect]
     Active Substance: LAMOTRIGINE
     Indication: Bipolar disorder
     Dosage: 25 MG, QD
     Dates: start: 20210225
  2. LAMICTAL [Suspect]
     Active Substance: LAMOTRIGINE
     Indication: Depressed mood
     Dosage: 50 MG, QD
     Dates: start: 20210306
  3. LAMICTAL [Suspect]
     Active Substance: LAMOTRIGINE
     Dosage: 75 MG, QD
     Dates: start: 20210312, end: 20210317
  4. LAMICTAL [Suspect]
     Active Substance: LAMOTRIGINE
     Dosage: 25 MG, QD
     Dates: start: 20210318, end: 20210321
  5. LITHIUM CARBONATE [Concomitant]
     Active Substance: LITHIUM CARBONATE
     Indication: Depressed mood
     Dosage: 400 MG
     Route: 048
     Dates: start: 20210225
  6. LATUDA [Concomitant]
     Active Substance: LURASIDONE HYDROCHLORIDE
     Indication: Bipolar disorder
     Dosage: UNK
  7. REBAMIPIDE [Concomitant]
     Active Substance: REBAMIPIDE
     Indication: Abdominal discomfort
     Dosage: 300 MG
     Route: 048
  8. OLANZAPINE [Concomitant]
     Active Substance: OLANZAPINE
     Indication: Depressed mood
     Dosage: 2.5 MG, PRN, 14 TIMES
     Route: 048
     Dates: start: 20210220
  9. OLANZAPINE [Concomitant]
     Active Substance: OLANZAPINE
     Dosage: 1.25 MG
     Route: 048
     Dates: start: 20210312
  10. OLANZAPINE [Concomitant]
     Active Substance: OLANZAPINE
     Dosage: 5 MG
     Route: 048
     Dates: start: 20210318

REACTIONS (13)
  - Hepatic failure [Unknown]
  - Drug eruption [Unknown]
  - Drug-induced liver injury [Recovered/Resolved]
  - Jaundice [Unknown]
  - Ocular icterus [Unknown]
  - Pruritus [Unknown]
  - Bilirubin conjugated abnormal [Unknown]
  - Renal cyst [Unknown]
  - Spleen disorder [Unknown]
  - Completed suicide [Fatal]
  - Product use issue [Unknown]
  - Off label use [Unknown]
  - Treatment noncompliance [Unknown]

NARRATIVE: CASE EVENT DATE: 20210101
